FAERS Safety Report 5856661-3 (Version None)
Quarter: 2008Q3

REPORT INFORMATION
  Report Type: 
  Country: None (occurrence: None)
  Receive Date: 20080825
  Receipt Date: 20080815
  Transmission Date: 20090109
  Serious: Yes (Hospitalization)
  Sender: FDA-Public Use
  Company Number: SE-ABBOTT-08P-150-0471075-00

PATIENT
  Age: 74 Year
  Sex: Male

DRUGS (1)
  1. ZEMPLAR [Suspect]
     Indication: HYPERPARATHYROIDISM SECONDARY
     Dosage: 5MCG/ML, 4ML/WEEK
     Route: 050
     Dates: start: 20080324

REACTIONS (6)
  - COUGH [None]
  - FOOT FRACTURE [None]
  - IMPAIRED HEALING [None]
  - LOCALISED INFECTION [None]
  - RESORPTION BONE INCREASED [None]
  - RESPIRATORY MONILIASIS [None]
